FAERS Safety Report 8499231-3 (Version None)
Quarter: 2012Q3

REPORT INFORMATION
  Report Type: 
  Country: None (occurrence: None)
  Receive Date: 20120710
  Receipt Date: 20120625
  Transmission Date: 20120928
  Serious: Yes (Other)
  Sender: FDA-Public Use
  Company Number: PHFR2012GB003886

PATIENT
  Age: 31 Year
  Sex: Male

DRUGS (6)
  1. CLOZARIL [Suspect]
     Indication: SCHIZOPHRENIA
     Dosage: UNK UKN, UNK
     Route: 048
     Dates: start: 19971110
  2. LANSOPRAZOLE [Suspect]
     Indication: GASTROOESOPHAGEAL REFLUX DISEASE
     Dosage: 15 MG, QD
     Route: 048
     Dates: start: 20031001
  3. CLOZARIL [Suspect]
     Dosage: 300 MG, QD
     Route: 048
     Dates: end: 20120528
  4. PIRENZEPINE [Concomitant]
     Indication: SALIVARY HYPERSECRETION
     Dosage: 50 MG, QD
     Route: 048
  5. OXAZEPAM [Concomitant]
     Indication: ANXIETY
     Dosage: 10 MG,
     Route: 048
     Dates: start: 20010627
  6. CLOZARIL [Suspect]
     Route: 048
     Dates: start: 20070129

REACTIONS (5)
  - ALANINE AMINOTRANSFERASE INCREASED [None]
  - RASH [None]
  - GLOBULINS INCREASED [None]
  - THROMBOCYTOPENIA [None]
  - BLOOD BILIRUBIN INCREASED [None]
